FAERS Safety Report 10917880 (Version 1)
Quarter: 2015Q1

REPORT INFORMATION
  Report Type: Spontaneous
  Country: US (occurrence: US)
  Receive Date: 20150316
  Receipt Date: 20150316
  Transmission Date: 20150721
  Serious: No
  Sender: FDA-Public Use
  Company Number: US-ELI_LILLY_AND_COMPANY-US201503003464

PATIENT
  Sex: Male

DRUGS (26)
  1. ENALAPRIL [Concomitant]
     Active Substance: ENALAPRIL
  2. ALBUTEROL HFA [Concomitant]
     Active Substance: ALBUTEROL SULFATE
  3. PLAVIX [Concomitant]
     Active Substance: CLOPIDOGREL BISULFATE
  4. VITAMIN D                          /00107901/ [Concomitant]
     Active Substance: ERGOCALCIFEROL
  5. LIDODERM [Concomitant]
     Active Substance: LIDOCAINE
  6. HUMALOG [Suspect]
     Active Substance: INSULIN LISPRO
     Indication: DIABETES MELLITUS
     Route: 065
  7. CRESTOR [Concomitant]
     Active Substance: ROSUVASTATIN CALCIUM
  8. VITAMIN E                          /00110501/ [Concomitant]
  9. NYSIN [Concomitant]
  10. AMLODIPINE [Concomitant]
     Active Substance: AMLODIPINE BESYLATE
  11. COENZYME Q10 [Concomitant]
     Active Substance: UBIDECARENONE
  12. LISINOPRIL. [Concomitant]
     Active Substance: LISINOPRIL
     Route: 065
  13. VITAMIN B12 [Concomitant]
     Active Substance: CYANOCOBALAMIN
  14. FLEXERIL [Concomitant]
     Active Substance: CYCLOBENZAPRINE HYDROCHLORIDE
  15. INSULIN HUMAN [Suspect]
     Active Substance: INSULIN HUMAN
     Indication: DIABETES MELLITUS
     Dosage: UNK
     Route: 065
  16. TRAMADOL [Concomitant]
     Active Substance: TRAMADOL
  17. ATENOLOL. [Concomitant]
     Active Substance: ATENOLOL
  18. LANTUS [Concomitant]
     Active Substance: INSULIN GLARGINE
  19. AMBIEN [Concomitant]
     Active Substance: ZOLPIDEM TARTRATE
  20. NITROGLYCERIN. [Concomitant]
     Active Substance: NITROGLYCERIN
  21. ASCORBIC ACID (VITAMIN C), PLAIN [Concomitant]
  22. LOVAZA [Concomitant]
     Active Substance: OMEGA-3-ACID ETHYL ESTERS
  23. MULTI VITAMIN [Concomitant]
     Active Substance: VITAMINS
  24. CREON [Concomitant]
     Active Substance: PANCRELIPASE AMYLASE\PANCRELIPASE LIPASE\PANCRELIPASE PROTEASE
  25. XANAX [Concomitant]
     Active Substance: ALPRAZOLAM
  26. ASPIRIN                            /00002701/ [Concomitant]
     Active Substance: ASPIRIN

REACTIONS (2)
  - Blood glucose increased [Unknown]
  - Diarrhoea [Unknown]
